FAERS Safety Report 23133846 (Version 1)
Quarter: 2023Q4

REPORT INFORMATION
  Report Type: Report from Study
  Country: US (occurrence: US)
  Receive Date: 20231101
  Receipt Date: 20231101
  Transmission Date: 20240110
  Serious: Yes (Other)
  Sender: FDA-Public Use
  Company Number: US-TAKEDA-2023TUS073906

PATIENT
  Sex: Male

DRUGS (3)
  1. MARIBAVIR [Suspect]
     Active Substance: MARIBAVIR
     Indication: Cytomegalovirus infection
     Dosage: 400 MILLIGRAM, BID
     Route: 048
     Dates: start: 20230526
  2. MARIBAVIR [Suspect]
     Active Substance: MARIBAVIR
     Indication: Renal transplant
  3. MARIBAVIR [Suspect]
     Active Substance: MARIBAVIR
     Indication: Post procedural infection

REACTIONS (2)
  - Cytomegalovirus viraemia [Not Recovered/Not Resolved]
  - Dysgeusia [Unknown]
